FAERS Safety Report 7586085-2 (Version None)
Quarter: 2011Q3

REPORT INFORMATION
  Report Type: 
  Country: None (occurrence: None)
  Receive Date: 20110701
  Receipt Date: 20110617
  Transmission Date: 20111222
  Serious: Yes (Death)
  Sender: FDA-Public Use
  Company Number: FR-BIOGENIDEC-2009BI006669

PATIENT
  Age: 35 Year
  Sex: Female

DRUGS (2)
  1. TYSABRI [Suspect]
     Indication: MULTIPLE SCLEROSIS
     Route: 042
     Dates: start: 20081101, end: 20090201
  2. TEGRETOL [Concomitant]
     Indication: FACIAL NEURALGIA
     Dates: start: 20070201

REACTIONS (1)
  - COMPLETED SUICIDE [None]
